FAERS Safety Report 21346053 (Version 1)
Quarter: 2022Q3

REPORT INFORMATION
  Report Type: Spontaneous
  Country: GB (occurrence: GB)
  Receive Date: 20220916
  Receipt Date: 20220916
  Transmission Date: 20221026
  Serious: Yes (Other)
  Sender: FDA-Public Use
  Company Number: GB-MHRA-MED-202209150843061800-YCTHP

PATIENT
  Age: 39 Year
  Sex: Male
  Weight: 62 kg

DRUGS (4)
  1. BIKTARVY [Suspect]
     Active Substance: BICTEGRAVIR SODIUM\EMTRICITABINE\TENOFOVIR ALAFENAMIDE FUMARATE
     Indication: HIV test positive
     Dosage: 1 DOSAGE FORM, QD
     Route: 065
     Dates: start: 20201113
  2. DARUNAVIR [Concomitant]
     Active Substance: DARUNAVIR
     Indication: HIV test positive
     Dosage: UNK
     Dates: start: 20220505
  3. COBICISTAT\DARUNAVIR ETHANOLATE [Concomitant]
     Active Substance: COBICISTAT\DARUNAVIR ETHANOLATE
     Indication: HIV test positive
     Dosage: UNK
     Dates: start: 20220305, end: 20220505
  4. RITONAVIR [Concomitant]
     Active Substance: RITONAVIR
     Indication: HIV test positive
     Dosage: UNK
     Dates: start: 20220708

REACTIONS (1)
  - Viral load [Not Recovered/Not Resolved]

NARRATIVE: CASE EVENT DATE: 20201113
